FAERS Safety Report 8108361-7 (Version None)
Quarter: 2012Q1

REPORT INFORMATION
  Report Type: 
  Country: None (occurrence: None)
  Receive Date: 20120202
  Receipt Date: 20120126
  Transmission Date: 20120608
  Serious: Yes (Hospitalization, Disabling, Other)
  Sender: FDA-Public Use
  Company Number: PHEH2008US08678

PATIENT
  Sex: Female

DRUGS (86)
  1. LEXAPRO [Concomitant]
  2. ALLEGRA [Concomitant]
  3. TERAZOSIN HCL [Concomitant]
     Dosage: UNK
  4. PROGESTERONE [Concomitant]
  5. BENADRYL ^ACHE^ [Concomitant]
  6. VITAMIN E [Concomitant]
  7. CLARITIN [Concomitant]
  8. MICARDIS [Concomitant]
  9. ADVAIR DISKUS 100/50 [Concomitant]
  10. FENTANYL CITRATE [Concomitant]
  11. CIPROFLOXACIN [Concomitant]
     Dosage: UNK
     Dates: end: 20090131
  12. KLONOPIN [Concomitant]
  13. PERCOCET [Concomitant]
  14. DEPO-MEDROL [Concomitant]
  15. VOLTAREN                           /00372303/ [Concomitant]
  16. VANCOMYCIN [Concomitant]
  17. MUCINEX [Concomitant]
  18. OXYCONTIN [Concomitant]
     Dosage: 10 MG, Q12H
     Route: 048
  19. DILAUDID [Concomitant]
     Dosage: 4 MG, UNK
  20. ZOMETA [Suspect]
     Indication: BONE DENSITY ABNORMAL
     Dosage: 4 MG, Q3MO
     Route: 042
     Dates: start: 20040119, end: 20070701
  21. FOSAMAX [Suspect]
     Dosage: UNK UKN, QW
  22. SUDAFED 12 HOUR [Concomitant]
  23. AGGRENOX [Concomitant]
  24. GLUCOSAMINE [Concomitant]
  25. EFFEXOR [Concomitant]
  26. SEREVENT [Concomitant]
  27. NORVASC [Concomitant]
     Dosage: 10 MG, DAILY
     Route: 048
  28. LORTAB [Concomitant]
     Dosage: 5/500 MG 1 EVERY FOUR HOURS AS NEEDED
     Route: 048
  29. LOMOTIL [Concomitant]
  30. DOXEPIN [Concomitant]
  31. PREMARIN [Concomitant]
  32. VICODIN [Concomitant]
     Dosage: UNK
  33. ARICEPT [Concomitant]
  34. CALCIUM [Concomitant]
  35. ARMODAFINIL [Concomitant]
  36. ZOVIRAX [Concomitant]
  37. SELENIUM [Concomitant]
  38. ASCORBIC ACID [Concomitant]
  39. NITROGLYCERIN [Concomitant]
  40. FLONASE [Concomitant]
  41. METAMUCIL-2 [Concomitant]
  42. DITROPAN XL [Concomitant]
  43. SYNTHROID [Concomitant]
  44. THYROID TAB [Concomitant]
     Dosage: UNK
  45. TESSALON [Concomitant]
  46. CYMBALTA [Concomitant]
  47. ADDERALL 5 [Concomitant]
  48. MULTIVITAMIN ^LAPPE^ [Concomitant]
  49. BEXTRA [Concomitant]
     Dosage: UNK
  50. PREMPRO [Concomitant]
  51. SINGULAIR [Concomitant]
     Dosage: 10 MG, DAILY AT NIGHT
     Route: 048
  52. BISACODYL [Concomitant]
     Dosage: ONCE DAILY AS NEEDED
  53. MORPHINE [Concomitant]
  54. PRAVACHOL [Concomitant]
  55. PLAVIX [Concomitant]
  56. ALTACE [Concomitant]
  57. ASPIRIN [Concomitant]
  58. CELEBREX [Concomitant]
  59. DESYREL [Concomitant]
  60. ASTELIN [Concomitant]
  61. NASONEX [Concomitant]
  62. DARVOCET-N 50 [Concomitant]
  63. SINUTAB ^ACHE^ [Concomitant]
  64. VITAMIN B6 [Concomitant]
  65. POTASSIUM CHLORIDE [Concomitant]
     Dosage: 20 MG, DAILY
     Route: 048
  66. CALCIUM CARBONATE [Concomitant]
     Dosage: 500 MG, DAILY
     Route: 048
  67. VIVELLE-DOT [Concomitant]
     Dosage: 0.1
  68. COMBIVENT [Concomitant]
  69. WELLBUTRIN [Concomitant]
  70. LASIX [Concomitant]
  71. LEVSIN [Concomitant]
  72. SOMA [Concomitant]
  73. DIAZEPAM [Concomitant]
  74. PRILOSEC [Concomitant]
  75. SEROQUEL [Concomitant]
  76. SOLU-MEDROL [Concomitant]
  77. FOLIC ACID [Concomitant]
     Dosage: 1 MG, DAILY
     Route: 048
  78. ESTRADERM [Concomitant]
     Dosage: ONE PATCH EVERY THURSDAY
  79. XANAX [Concomitant]
     Dosage: UNK
  80. CORTISONE ACETATE [Concomitant]
  81. ACTIVASE [Concomitant]
  82. ATROPINE SULFATE [Concomitant]
  83. ESTROGENS CONJUGATED [Concomitant]
  84. ST. JOHN'S WORT [Concomitant]
  85. FLOVENT [Concomitant]
  86. ACYCLOVIR [Concomitant]
     Dosage: 400 MG, EVERY TWELVE HOUR
     Route: 048

REACTIONS (100)
  - PULMONARY FIBROSIS [None]
  - INJURY [None]
  - ANHEDONIA [None]
  - GAIT DISTURBANCE [None]
  - BRONCHOPLEURAL FISTULA [None]
  - PNEUMOTHORAX [None]
  - COUGH [None]
  - COLONIC POLYP [None]
  - RASH [None]
  - CHRONIC OBSTRUCTIVE PULMONARY DISEASE [None]
  - CHEST PAIN [None]
  - EMPYEMA [None]
  - DEPRESSION [None]
  - OSTEOARTHRITIS [None]
  - CYST [None]
  - FIBULA FRACTURE [None]
  - MASTICATION DISORDER [None]
  - BLOOD CALCIUM DECREASED [None]
  - LYMPHADENOPATHY MEDIASTINAL [None]
  - MENTAL STATUS CHANGES [None]
  - TRANSIENT ISCHAEMIC ATTACK [None]
  - INTERVERTEBRAL DISC DEGENERATION [None]
  - INTERCOSTAL NEURALGIA [None]
  - CANCER PAIN [None]
  - TIBIA FRACTURE [None]
  - ABSCESS [None]
  - OSTEOPENIA [None]
  - CEREBROVASCULAR DISORDER [None]
  - OSTEOPOROSIS [None]
  - SINUSITIS [None]
  - HYDROPNEUMOTHORAX [None]
  - FOOT DEFORMITY [None]
  - OEDEMA PERIPHERAL [None]
  - INJURY CORNEAL [None]
  - GASTRITIS [None]
  - NAUSEA [None]
  - DIARRHOEA [None]
  - BACK PAIN [None]
  - PYREXIA [None]
  - ALLODYNIA [None]
  - HYPOAESTHESIA [None]
  - DIVERTICULUM INTESTINAL [None]
  - PAIN [None]
  - URINARY INCONTINENCE [None]
  - PULMONARY AIR LEAKAGE [None]
  - BLOOD UREA NITROGEN/CREATININE RATIO INCREASED [None]
  - NECK PAIN [None]
  - ANXIETY [None]
  - RENAL FAILURE ACUTE [None]
  - RIB FRACTURE [None]
  - PAIN IN EXTREMITY [None]
  - EYE DISCHARGE [None]
  - WOUND INFECTION STAPHYLOCOCCAL [None]
  - ATELECTASIS [None]
  - TOOTHACHE [None]
  - CARDIOMEGALY [None]
  - RHINITIS [None]
  - LACERATION [None]
  - PLEURAL FIBROSIS [None]
  - TREMOR [None]
  - HYPERAESTHESIA [None]
  - LUNG INFECTION [None]
  - NEUROPATHY PERIPHERAL [None]
  - FALL [None]
  - ROTATOR CUFF SYNDROME [None]
  - UPPER-AIRWAY COUGH SYNDROME [None]
  - LUNG NEOPLASM MALIGNANT [None]
  - CHONDROMALACIA [None]
  - SINUS BRADYCARDIA [None]
  - BREAST CALCIFICATIONS [None]
  - VISION BLURRED [None]
  - FAECAL INCONTINENCE [None]
  - BACTERIAL DISEASE CARRIER [None]
  - INSOMNIA [None]
  - FOOT FRACTURE [None]
  - CERVICAL SPINAL STENOSIS [None]
  - EMPHYSEMA [None]
  - RETCHING [None]
  - OSTEORADIONECROSIS [None]
  - MUSCULOSKELETAL CHEST PAIN [None]
  - SPINAL OSTEOARTHRITIS [None]
  - AORTIC ARTERIOSCLEROSIS [None]
  - ABDOMINAL PAIN UPPER [None]
  - IRRITABLE BOWEL SYNDROME [None]
  - THORACIC VERTEBRAL FRACTURE [None]
  - LIP AND/OR ORAL CAVITY CANCER [None]
  - LIP DISCOLOURATION [None]
  - OSTEONECROSIS OF JAW [None]
  - TOOTH DISORDER [None]
  - MENOPAUSE [None]
  - SOMNOLENCE [None]
  - TOOTH FRACTURE [None]
  - ANTIBIOTIC RESISTANT STAPHYLOCOCCUS TEST [None]
  - METASTASES TO LYMPH NODES [None]
  - DYSPNOEA EXERTIONAL [None]
  - WHEEZING [None]
  - RECTAL POLYP [None]
  - TENDON RUPTURE [None]
  - HEADACHE [None]
  - TENDERNESS [None]
